FAERS Safety Report 21228044 (Version 3)
Quarter: 2022Q3

REPORT INFORMATION
  Report Type: Report from Study
  Country: DE (occurrence: None)
  Receive Date: 20220818
  Receipt Date: 20220919
  Transmission Date: 20221027
  Serious: Yes (Hospitalization)
  Sender: FDA-Public Use
  Company Number: DE-ROCHE-3158957

PATIENT
  Age: 57 Year
  Sex: Female
  Weight: 84 kg

DRUGS (10)
  1. ATEZOLIZUMAB [Suspect]
     Active Substance: ATEZOLIZUMAB
     Indication: Triple negative breast cancer
     Dosage: ON 06/JUL/2022, RECEIVED LAST DOSE OF ATEZOLIZUMAB PRIOR TO SAE.
     Route: 042
     Dates: start: 20220524
  2. PACLITAXEL [Suspect]
     Active Substance: PACLITAXEL
     Indication: Triple negative breast cancer
     Dosage: ON 06/JUL/2022, RECEIVED LAST DOSE OF PACLITAXEL PRIOR TO SAE.
     Route: 042
     Dates: start: 20220524
  3. CARBOPLATIN [Suspect]
     Active Substance: CARBOPLATIN
     Indication: Triple negative breast cancer
     Dosage: ON 06/JUL/2022, RECEIVED LAST DOSE OF CARBOPLATIN PRIOR TO SAE.
     Route: 042
     Dates: start: 20220524
  4. CANDESARTAN [Concomitant]
     Active Substance: CANDESARTAN
  5. PANTOPRAZOLE [Concomitant]
     Active Substance: PANTOPRAZOLE
  6. FLUOXETINE HYDROCHLORIDE [Concomitant]
     Active Substance: FLUOXETINE HYDROCHLORIDE
  7. ASPIRIN [Concomitant]
     Active Substance: ASPIRIN
     Dosage: 100
  8. DEXAMETHASONE [Concomitant]
     Active Substance: DEXAMETHASONE
  9. MCP [Concomitant]
     Active Substance: METOCLOPRAMIDE HYDROCHLORIDE
  10. ONDANSETRON [Concomitant]
     Active Substance: ONDANSETRON
     Dosage: 8

REACTIONS (1)
  - Pulmonary embolism [Unknown]

NARRATIVE: CASE EVENT DATE: 20220713
